FAERS Safety Report 24912620 (Version 1)
Quarter: 2025Q1

REPORT INFORMATION
  Report Type: Spontaneous
  Country: RU (occurrence: RU)
  Receive Date: 20250131
  Receipt Date: 20250131
  Transmission Date: 20250408
  Serious: Yes (Hospitalization, Other)
  Sender: ALEXION PHARMACEUTICALS
  Company Number: RU-AstraZeneca-CH-00782821A

PATIENT
  Age: 8 Year
  Weight: 28 kg

DRUGS (2)
  1. KOSELUGO [Suspect]
     Active Substance: SELUMETINIB
     Indication: Neurofibroma
     Dosage: 40 MILLIGRAM, QD
  2. KOSELUGO [Suspect]
     Active Substance: SELUMETINIB
     Dosage: 50 MILLIGRAM, QD  (3 CAPSULES OF 10 MG IN THE MORNING, 2 CAPSULES OF 10 MG IN THE EVENING)

REACTIONS (22)
  - Rash pustular [Unknown]
  - Urinary tract infection [Recovered/Resolved]
  - Alopecia [Not Recovered/Not Resolved]
  - Dry skin [Not Recovered/Not Resolved]
  - Autoimmune thyroiditis [Unknown]
  - Epistaxis [Recovered/Resolved]
  - Nasal dryness [Recovered/Resolved]
  - Nail bed infection [Recovered/Resolved]
  - Eye swelling [Recovered/Resolved]
  - Hypotension [Unknown]
  - Dizziness [Unknown]
  - Nausea [Unknown]
  - Headache [Unknown]
  - Dermatitis [Not Recovered/Not Resolved]
  - Eczema [Unknown]
  - Blood pressure decreased [Unknown]
  - Blood creatine phosphokinase increased [Unknown]
  - Varicella [Recovered/Resolved]
  - Vasomotor rhinitis [Unknown]
  - Adenoidal hypertrophy [Unknown]
  - Mitral valve prolapse [Unknown]
  - Vitamin D deficiency [Unknown]
